FAERS Safety Report 19135770 (Version 1)
Quarter: 2021Q2

REPORT INFORMATION
  Report Type: Spontaneous
  Country: GR (occurrence: GR)
  Receive Date: 20210414
  Receipt Date: 20210414
  Transmission Date: 20210717
  Serious: Yes (Other)
  Sender: FDA-Public Use
  Company Number: NVSC2021GR079061

PATIENT
  Age: 52 Year
  Sex: Male

DRUGS (2)
  1. COSENTYX [Suspect]
     Active Substance: SECUKINUMAB
     Dosage: 300 MG (2X150 MG)
     Route: 065
  2. COSENTYX [Suspect]
     Active Substance: SECUKINUMAB
     Indication: ANKYLOSING SPONDYLITIS
     Dosage: 150 MG (1X 150 MG)
     Route: 065
     Dates: start: 202008

REACTIONS (4)
  - Angiopathy [Unknown]
  - Pulmonary haemorrhage [Unknown]
  - Vasculitis [Unknown]
  - Ankylosing spondylitis [Unknown]
